FAERS Safety Report 9495654 (Version 1)
Quarter: 2013Q3

REPORT INFORMATION
  Report Type: Spontaneous
  Country: US (occurrence: US)
  Receive Date: 20130903
  Receipt Date: 20130903
  Transmission Date: 20140515
  Serious: Yes (Other)
  Sender: FDA-Public Use
  Company Number: CHPA2013US013613

PATIENT
  Sex: Female

DRUGS (3)
  1. VOLTAREN GEL [Suspect]
     Indication: JOINT INJURY
     Dosage: UNK,ONE TO TWO TIMES DAILY
     Route: 061
  2. VOLTAREN GEL [Suspect]
     Indication: ARTHRALGIA
  3. COUMADIN SODIUM [Concomitant]
     Dosage: 7.5 MG, UNK

REACTIONS (2)
  - Cystitis [Recovered/Resolved]
  - Off label use [Unknown]
